FAERS Safety Report 12201067 (Version 1)
Quarter: 2016Q1

REPORT INFORMATION
  Report Type: Spontaneous
  Country: US (occurrence: US)
  Receive Date: 20160322
  Receipt Date: 20160322
  Transmission Date: 20160526
  Serious: No
  Sender: FDA-Public Use
  Company Number: US-SA-2015SA075170

PATIENT
  Sex: Female

DRUGS (1)
  1. NASACORT ALLERGY 24HR [Suspect]
     Active Substance: TRIAMCINOLONE ACETONIDE
     Dosage: DOSE: 2 SPRAYS IN EACH NOSTRIL OF NASACORT 10 MINUTES AGO AND DID ANOTHER 2 SPRAYS IN EACH NOSTRIL.
     Route: 045

REACTIONS (2)
  - Extra dose administered [Unknown]
  - Drug ineffective [Unknown]
